FAERS Safety Report 18571734 (Version 3)
Quarter: 2025Q3

REPORT INFORMATION
  Report Type: Spontaneous
  Country: US (occurrence: US)
  Receive Date: 20201202
  Receipt Date: 20250815
  Transmission Date: 20251021
  Serious: Yes (Other)
  Sender: PURDUE
  Company Number: US-PURDUE-USA-2020-0179427

PATIENT
  Age: 39 Year
  Sex: Male

DRUGS (4)
  1. OXYCONTIN [Suspect]
     Active Substance: OXYCODONE HYDROCHLORIDE
     Indication: Product used for unknown indication
     Route: 048
  2. MS CONTIN [Suspect]
     Active Substance: MORPHINE SULFATE
     Indication: Product used for unknown indication
     Route: 048
  3. HYDROCODONE BITARTRATE AND ACETAMINOPHEN [Suspect]
     Active Substance: ACETAMINOPHEN\HYDROCODONE BITARTRATE
     Indication: Product used for unknown indication
     Route: 048
  4. OXYCODONE HYDROCHLORIDE [Suspect]
     Active Substance: OXYCODONE HYDROCHLORIDE
     Indication: Product used for unknown indication
     Route: 065

REACTIONS (14)
  - Renal injury [Unknown]
  - Bipolar disorder [Unknown]
  - Major depression [Unknown]
  - Mycotoxicosis [Unknown]
  - Drug dependence [Unknown]
  - Illness [Unknown]
  - Emotional distress [Unknown]
  - Post-acute COVID-19 syndrome [Unknown]
  - Cognitive disorder [Unknown]
  - Memory impairment [Unknown]
  - Pain [Unknown]
  - Anxiety [Unknown]
  - Impaired quality of life [Unknown]
  - Drug withdrawal syndrome [Unknown]
